FAERS Safety Report 8165581-3 (Version None)
Quarter: 2012Q1

REPORT INFORMATION
  Report Type: 
  Country: None (occurrence: None)
  Receive Date: 20120227
  Receipt Date: 20120220
  Transmission Date: 20120608
  Serious: Yes (Hospitalization)
  Sender: FDA-Public Use
  Company Number: CA-US-EMD SERONO, INC.-7074773

PATIENT
  Sex: Male

DRUGS (2)
  1. REBIF [Suspect]
     Route: 058
     Dates: end: 20111107
  2. REBIF [Suspect]
     Indication: MULTIPLE SCLEROSIS
     Route: 058
     Dates: start: 20110720

REACTIONS (2)
  - INFLUENZA LIKE ILLNESS [None]
  - PNEUMONIA [None]
